FAERS Safety Report 15059131 (Version 1)
Quarter: 2018Q2

REPORT INFORMATION
  Report Type: Spontaneous
  Country: US (occurrence: US)
  Receive Date: 20180605
  Receipt Date: 20180605
  Transmission Date: 20180711
  Serious: Yes (Hospitalization)
  Sender: FDA-Public Use
  Company Number: None

PATIENT
  Age: 65 Year
  Sex: Male
  Weight: 55.8 kg

DRUGS (2)
  1. VENETOCLAX 400MG PO DAILY [Suspect]
     Active Substance: VENETOCLAX
     Indication: B-CELL LYMPHOMA RECURRENT
     Route: 048
     Dates: start: 20180321, end: 20180602
  2. IBRUTINIB [Suspect]
     Active Substance: IBRUTINIB
     Indication: B-CELL LYMPHOMA RECURRENT
     Route: 048
     Dates: start: 20180321, end: 20180602

REACTIONS (13)
  - Retroperitoneal lymphadenopathy [None]
  - Spinal compression fracture [None]
  - Nausea [None]
  - Hypophagia [None]
  - Fatigue [None]
  - Diarrhoea [None]
  - Decreased appetite [None]
  - Drug ineffective [None]
  - Failure to thrive [None]
  - Weight decreased [None]
  - Intestinal dilatation [None]
  - Pyrexia [None]
  - Ileus [None]

NARRATIVE: CASE EVENT DATE: 20180602
